FAERS Safety Report 14430660 (Version 1)
Quarter: 2018Q1

REPORT INFORMATION
  Report Type: Spontaneous
  Country: FR (occurrence: FR)
  Receive Date: 20180124
  Receipt Date: 20180124
  Transmission Date: 20180509
  Serious: Yes (Other)
  Sender: FDA-Public Use
  Company Number: FR-MERCK KGAA-2040671

PATIENT
  Age: 42 Year
  Sex: Female

DRUGS (1)
  1. NOVOTHYROX [Suspect]
     Active Substance: LEVOTHYROXINE SODIUM
     Indication: PRODUCT USED FOR UNKNOWN INDICATION

REACTIONS (13)
  - Increased appetite [None]
  - Depressed mood [None]
  - Weight increased [None]
  - Mood swings [None]
  - Alopecia [None]
  - Irritability [None]
  - Decreased interest [None]
  - Arthrodesis [None]
  - Onychoclasis [None]
  - Back pain [None]
  - Dyspnoea [None]
  - Disturbance in attention [None]
  - Fatigue [None]

NARRATIVE: CASE EVENT DATE: 201705
